FAERS Safety Report 6374433-0 (Version None)
Quarter: 2009Q3

REPORT INFORMATION
  Report Type: 
  Country: None (occurrence: None)
  Receive Date: 20090924
  Receipt Date: 20090918
  Transmission Date: 20100115
  Serious: Yes (Other)
  Sender: FDA-Public Use
  Company Number: US-PFIZER INC-2009250250

PATIENT
  Sex: Male
  Weight: 77.11 kg

DRUGS (7)
  1. LIPITOR [Suspect]
     Indication: BLOOD CHOLESTEROL INCREASED
     Dosage: UNK
     Route: 048
     Dates: start: 20031104, end: 20061201
  2. LIPITOR [Suspect]
     Indication: MYOCARDIAL INFARCTION
  3. PLAVIX [Suspect]
     Indication: STENT PLACEMENT
     Dosage: 75 MG, 1X/DAY
     Route: 048
     Dates: start: 20090630
  4. CRESTOR [Suspect]
     Dosage: UNK
  5. FLOVENT [Concomitant]
     Dosage: UNK
     Route: 048
  6. FLOVENT [Concomitant]
     Route: 045
  7. FLONASE [Concomitant]
     Dosage: UNK
     Route: 045

REACTIONS (12)
  - ARTHRALGIA [None]
  - ASTHENIA [None]
  - BACK PAIN [None]
  - BALANCE DISORDER [None]
  - BONE PAIN [None]
  - DIZZINESS [None]
  - HEADACHE [None]
  - MALAISE [None]
  - MYALGIA [None]
  - STENT PLACEMENT [None]
  - URINE OUTPUT DECREASED [None]
  - VISION BLURRED [None]
